FAERS Safety Report 19999903 (Version 1)
Quarter: 2021Q4

REPORT INFORMATION
  Report Type: Spontaneous
  Country: FR (occurrence: FR)
  Receive Date: 20211026
  Receipt Date: 20211026
  Transmission Date: 20220303
  Serious: Yes (Other)
  Sender: FDA-Public Use
  Company Number: FR-JNJFOC-20211021904

PATIENT
  Sex: Female

DRUGS (1)
  1. TOPIRAMATE [Suspect]
     Active Substance: TOPIRAMATE
     Indication: Product used for unknown indication
     Route: 048

REACTIONS (5)
  - Abortion spontaneous [Recovered/Resolved]
  - Stillbirth [Unknown]
  - Ectopic pregnancy [Unknown]
  - Benign hydatidiform mole [Unknown]
  - Exposure during pregnancy [Recovered/Resolved]
